FAERS Safety Report 15023628 (Version 1)
Quarter: 2018Q2

REPORT INFORMATION
  Report Type: Spontaneous
  Country: IT (occurrence: IT)
  Receive Date: 20180618
  Receipt Date: 20180618
  Transmission Date: 20180711
  Serious: Yes (Hospitalization)
  Sender: FDA-Public Use
  Company Number: IT-LANNETT COMPANY, INC.-IT-2018LAN000758

PATIENT

DRUGS (1)
  1. ATORVASTATIN CALCIUM. [Suspect]
     Active Substance: ATORVASTATIN CALCIUM
     Indication: PRODUCT USED FOR UNKNOWN INDICATION
     Dosage: UNK

REACTIONS (9)
  - Skin exfoliation [Unknown]
  - Rash [Unknown]
  - Stevens-Johnson syndrome [Unknown]
  - Dermatitis [Unknown]
  - Biopsy skin abnormal [Unknown]
  - Drug interaction [Unknown]
  - Epidermal necrosis [Unknown]
  - Rhabdomyolysis [Unknown]
  - Renal failure [Unknown]
